FAERS Safety Report 6659182-3 (Version None)
Quarter: 2010Q1

REPORT INFORMATION
  Report Type: 
  Country: None (occurrence: None)
  Receive Date: 20100330
  Receipt Date: 20100315
  Transmission Date: 20100710
  Serious: No
  Sender: FDA-Public Use
  Company Number: US-BIOGENIDEC-2010BI009172

PATIENT
  Age: 50 Year
  Sex: Female

DRUGS (1)
  1. TYSABRI [Suspect]
     Indication: MULTIPLE SCLEROSIS
     Route: 042
     Dates: start: 20090903

REACTIONS (11)
  - FATIGUE [None]
  - FEELING JITTERY [None]
  - HEADACHE [None]
  - MEMORY IMPAIRMENT [None]
  - NASOPHARYNGITIS [None]
  - NERVOUSNESS [None]
  - PERSONALITY DISORDER [None]
  - PNEUMONIA [None]
  - PULMONARY OEDEMA [None]
  - VERTIGO [None]
  - WEIGHT INCREASED [None]
